FAERS Safety Report 8823386 (Version 4)
Quarter: 2013Q2

REPORT INFORMATION
  Report Type: Spontaneous
  Country: US (occurrence: US)
  Receive Date: 20121003
  Receipt Date: 20130528
  Transmission Date: 20140414
  Serious: No
  Sender: FDA-Public Use
  Company Number: US-009507513-1209USA010540

PATIENT
  Age: 29 Year
  Sex: Female
  Weight: 113.83 kg

DRUGS (1)
  1. IMPLANON [Suspect]
     Indication: CONTRACEPTION
     Dosage: UNK
     Route: 059
     Dates: start: 20110307

REACTIONS (4)
  - Unintended pregnancy [Recovered/Resolved]
  - Device difficult to use [Unknown]
  - Medical device complication [Unknown]
  - Medical device complication [Unknown]
